FAERS Safety Report 20669925 (Version 1)
Quarter: 2022Q2

REPORT INFORMATION
  Report Type: Spontaneous
  Country: RO (occurrence: None)
  Receive Date: 20220404
  Receipt Date: 20220404
  Transmission Date: 20220720
  Serious: Yes (Other)
  Sender: FDA-Public Use
  Company Number: RO-009507513-2203ROU007341

PATIENT
  Age: 73 Year
  Sex: Female

DRUGS (4)
  1. CARBOPLATIN [Suspect]
     Active Substance: CARBOPLATIN
     Indication: Product used for unknown indication
     Dosage: AREA UNDER THE CURVE (AUC) 6
     Dates: start: 202111
  2. PEMETREXED [Suspect]
     Active Substance: PEMETREXED
     Indication: Product used for unknown indication
     Dosage: 500 MG/M2
     Dates: start: 202111
  3. PEMBROLIZUMAB [Suspect]
     Active Substance: PEMBROLIZUMAB
     Indication: Product used for unknown indication
     Dosage: 200 MILLIGRAM EVERY 3 WEEKS
     Dates: start: 202111
  4. LEVOTHYROXINE SODIUM [Concomitant]
     Active Substance: LEVOTHYROXINE SODIUM
     Indication: Product used for unknown indication
     Dosage: 100 (UNITS NOT PROVIDED)

REACTIONS (5)
  - Skin exfoliation [Unknown]
  - Stevens-Johnson syndrome [Unknown]
  - Dermatitis bullous [Unknown]
  - Toxic skin eruption [Unknown]
  - Rash maculo-papular [Unknown]
